FAERS Safety Report 9672100 (Version 1)
Quarter: 2013Q4

REPORT INFORMATION
  Report Type: Spontaneous
  Country: IN (occurrence: None)
  Receive Date: 20131104
  Receipt Date: 20131104
  Transmission Date: 20140711
  Serious: Yes (Hospitalization)
  Sender: FDA-Public Use
  Company Number: 2013P1020495

PATIENT
  Age: 12 Year
  Sex: Male

DRUGS (1)
  1. VALPROATE SODIUM [Suspect]
     Indication: CONVULSION

REACTIONS (10)
  - Mitochondrial myopathy [None]
  - Encephalopathy [None]
  - Lactic acidosis [None]
  - Pain in extremity [None]
  - Hepatic function abnormal [None]
  - Condition aggravated [None]
  - Blood lactate dehydrogenase increased [None]
  - Cerebral infarction [None]
  - Convulsion [None]
  - MELAS syndrome [None]
